FAERS Safety Report 8940638 (Version 1)
Quarter: 2012Q4

REPORT INFORMATION
  Report Type: 
  Country: US (occurrence: US)
  Receive Date: 20121203
  Receipt Date: 20121203
  Transmission Date: 20130627
  Serious: Yes (Hospitalization, Other)
  Sender: FDA-Public Use
  Company Number: US-ROXANE LABORATORIES, INC.-2012-RO-02470RO

PATIENT
  Age: 15 Year
  Sex: Female

DRUGS (12)
  1. MERCAPTOPURINE [Suspect]
     Indication: CROHN^S DISEASE
     Dosage: 75 mg
     Route: 048
  2. DEXAMETHASONE [Suspect]
     Indication: EPSTEIN-BARR VIRUS INFECTION
  3. DEXAMETHASONE [Suspect]
     Indication: HISTIOCYTOSIS HAEMATOPHAGIC
  4. CYCLOPHOSPHAMIDE TABLETS USP [Suspect]
     Indication: DIFFUSE LARGE B-CELL LYMPHOMA
  5. PREDNISONE [Suspect]
     Indication: DIFFUSE LARGE B-CELL LYMPHOMA
  6. ETOPOSIDE [Suspect]
     Indication: EPSTEIN-BARR VIRUS INFECTION
  7. ETOPOSIDE [Suspect]
     Indication: HISTIOCYTOSIS HAEMATOPHAGIC
  8. CICLOSPORIN [Suspect]
     Indication: EPSTEIN-BARR VIRUS INFECTION
  9. CICLOSPORIN [Suspect]
     Indication: HISTIOCYTOSIS HAEMATOPHAGIC
  10. RITUXIMAB [Suspect]
     Indication: DIFFUSE LARGE B-CELL LYMPHOMA
  11. DOXORUBICIN [Suspect]
     Indication: DIFFUSE LARGE B-CELL LYMPHOMA
  12. VINCRISTINE [Suspect]
     Indication: DIFFUSE LARGE B-CELL LYMPHOMA

REACTIONS (7)
  - Diffuse large B-cell lymphoma [Recovered/Resolved]
  - Epstein-Barr virus infection [Unknown]
  - Histiocytosis haematophagic [Unknown]
  - Hepatitis cholestatic [Unknown]
  - Respiratory distress [Unknown]
  - Pyrexia [Unknown]
  - Neutropenia [Unknown]
